FAERS Safety Report 4965546-6 (Version None)
Quarter: 2006Q1

REPORT INFORMATION
  Report Type: 
  Country: None (occurrence: None)
  Receive Date: 20060201
  Receipt Date: 20051206
  Transmission Date: 20060701
  Serious: No
  Sender: FDA-Public Use
  Company Number: 2005PV005490

PATIENT
  Age: 52 Year
  Sex: Male
  Weight: 136.9863 kg

DRUGS (3)
  1. BYETTA [Suspect]
     Indication: WEIGHT DECREASED
     Dosage: SEE IMAGE
     Dates: start: 20050901, end: 20051001
  2. BYETTA [Suspect]
     Indication: WEIGHT DECREASED
     Dosage: SEE IMAGE
     Dates: start: 20051001
  3. CARDURA [Concomitant]

REACTIONS (2)
  - FOOD AVERSION [None]
  - WEIGHT DECREASED [None]
